FAERS Safety Report 23677254 (Version 3)
Quarter: 2024Q2

REPORT INFORMATION
  Report Type: Spontaneous
  Country: US (occurrence: US)
  Receive Date: 20240327
  Receipt Date: 20240514
  Transmission Date: 20240716
  Serious: Yes (Disabling, Other)
  Sender: FDA-Public Use
  Company Number: US-REGENERON PHARMACEUTICALS, INC.-2024-049783

PATIENT
  Sex: Female

DRUGS (2)
  1. EYLEA [Suspect]
     Active Substance: AFLIBERCEPT
     Indication: Neovascular age-related macular degeneration
     Dosage: UNK, ONCE A MONTH, FORMULATION: UNKNOWN
     Route: 065
     Dates: start: 2018
  2. EYLEA [Suspect]
     Active Substance: AFLIBERCEPT
     Dosage: UNK, EVERY THREE MONTHS OR SOMETHING LIKE THAT, FORMULATION: UNKNOWN
     Route: 065
     Dates: end: 202308

REACTIONS (4)
  - Blindness [Unknown]
  - Dry age-related macular degeneration [Unknown]
  - Disease progression [Unknown]
  - Drug ineffective [Unknown]
